FAERS Safety Report 8009625-8 (Version None)
Quarter: 2011Q4

REPORT INFORMATION
  Report Type: 
  Country: None (occurrence: None)
  Receive Date: 20111228
  Receipt Date: 20111219
  Transmission Date: 20120403
  Serious: Yes (Hospitalization)
  Sender: FDA-Public Use
  Company Number: US-BIOGENIDEC-2011BI007613

PATIENT
  Sex: Female

DRUGS (1)
  1. AVONEX [Suspect]
     Indication: MULTIPLE SCLEROSIS
     Route: 030
     Dates: end: 20110113

REACTIONS (5)
  - INJECTION SITE ABSCESS [None]
  - INJECTION SITE HAEMATOMA [None]
  - IMPAIRED HEALING [None]
  - GAIT DISTURBANCE [None]
  - STAPHYLOCOCCAL INFECTION [None]
